FAERS Safety Report 6660731-X (Version None)
Quarter: 2010Q1

REPORT INFORMATION
  Report Type: 
  Country: None (occurrence: None)
  Receive Date: 20100331
  Receipt Date: 20100324
  Transmission Date: 20100710
  Serious: Yes (Other)
  Sender: FDA-Public Use
  Company Number: GB-ASTRAZENECA-2010SE13144

PATIENT

DRUGS (2)
  1. TAMOXIFEN CITRATE [Suspect]
     Route: 048
  2. RADIOTHERAPY [Concomitant]
     Dosage: 45 GY IN A DAILY FRACTIONS OF 1.8 GY OVER 6 WEEKS.

REACTIONS (1)
  - LOSS OF CONSCIOUSNESS [None]
